FAERS Safety Report 10063223 (Version 2)
Quarter: 2014Q2

REPORT INFORMATION
  Report Type: Spontaneous
  Country: FR (occurrence: FR)
  Receive Date: 20140407
  Receipt Date: 20140423
  Transmission Date: 20141212
  Serious: Yes (Death)
  Sender: FDA-Public Use
  Company Number: FR-ASTELLAS-2014US003471

PATIENT
  Age: 89 Year
  Sex: Male

DRUGS (2)
  1. AMBISOME [Suspect]
     Indication: ZYGOMYCOSIS
     Route: 065
  2. CORTANCYL [Concomitant]
     Indication: PRODUCT USED FOR UNKNOWN INDICATION
     Route: 065

REACTIONS (1)
  - Drug ineffective [Fatal]
